FAERS Safety Report 7526605-7 (Version None)
Quarter: 2011Q2

REPORT INFORMATION
  Report Type: 
  Country: None (occurrence: None)
  Receive Date: 20110606
  Receipt Date: 20110601
  Transmission Date: 20111010
  Serious: Yes (Life-Threatening, Other)
  Sender: FDA-Public Use
  Company Number: JP-CELGENEUS-087-21880-11033374

PATIENT
  Sex: Female

DRUGS (17)
  1. REVLIMID [Suspect]
     Indication: MULTIPLE MYELOMA
     Dosage: 10 MILLIGRAM
     Route: 048
     Dates: start: 20110207, end: 20110218
  2. PREDNISOLONE [Concomitant]
     Indication: MULTIPLE MYELOMA
     Dosage: 10 MILLIGRAM
     Route: 048
     Dates: start: 20110210, end: 20110213
  3. ASPARA POTASSIUM [Concomitant]
     Indication: PROPHYLAXIS
     Dosage: 600 MILLIGRAM
     Route: 048
     Dates: start: 20110205, end: 20110224
  4. DESFERAL [Concomitant]
     Indication: PROPHYLAXIS
     Dosage: 500 MILLIGRAM
     Route: 041
     Dates: start: 20110210, end: 20110222
  5. DEXAMETHASONE [Suspect]
     Dosage: 8 MILLIGRAM
     Route: 048
     Dates: start: 20110215, end: 20110216
  6. BACTRIM [Concomitant]
     Indication: PROPHYLAXIS
     Dosage: 1 GRAM
     Route: 048
     Dates: start: 20110205, end: 20110224
  7. DEXAMETHASONE [Concomitant]
     Dosage: 8 MILLIGRAM
     Route: 041
     Dates: start: 20110226, end: 20110301
  8. FOLIC ACID [Concomitant]
     Indication: ILL-DEFINED DISORDER
     Dosage: 10 MILLIGRAM
     Route: 048
     Dates: start: 20110216, end: 20110224
  9. DEXAMETHASONE [Suspect]
     Indication: MULTIPLE MYELOMA
     Dosage: 20 MILLIGRAM
     Route: 048
     Dates: start: 20110207, end: 20110208
  10. ALLOPURINOL [Concomitant]
     Indication: ILL-DEFINED DISORDER
     Dosage: 50 MILLIGRAM
     Route: 048
     Dates: start: 20110205, end: 20110224
  11. ZOMETA [Concomitant]
     Indication: ILL-DEFINED DISORDER
     Dosage: 4 MILLIGRAM
     Route: 041
     Dates: start: 20110216, end: 20110216
  12. DEXAMETHASONE [Concomitant]
     Indication: MULTIPLE MYELOMA
     Dosage: 16 MILLIGRAM
     Route: 041
     Dates: start: 20110223, end: 20110225
  13. ITRACONAZOLE [Concomitant]
     Indication: PROPHYLAXIS
     Dosage: 100 MILLIGRAM
     Route: 048
     Dates: start: 20110205, end: 20110224
  14. LANSOPRAZOLE [Concomitant]
     Indication: PROPHYLAXIS
     Dosage: 15 MILLIGRAM
     Route: 048
     Dates: start: 20110205, end: 20110224
  15. MUCODYNE [Concomitant]
     Indication: PROPHYLAXIS
     Dosage: 1500 MILLIGRAM
     Route: 048
     Dates: start: 20110205, end: 20110224
  16. GLAKAY [Concomitant]
     Indication: PROPHYLAXIS
     Dosage: 30 MILLIGRAM
     Route: 048
     Dates: start: 20110207, end: 20110224
  17. KENKETSU VENOGLOBULIN-IH [Concomitant]
     Indication: ILL-DEFINED DISORDER
     Dosage: 5 GRAM
     Route: 041
     Dates: start: 20110219, end: 20110221

REACTIONS (6)
  - PYREXIA [None]
  - RENAL FAILURE ACUTE [None]
  - ANAEMIA [None]
  - HEPATIC FUNCTION ABNORMAL [None]
  - FEBRILE NEUTROPENIA [None]
  - HYPERKALAEMIA [None]
